FAERS Safety Report 11230926 (Version 1)
Quarter: 2015Q3

REPORT INFORMATION
  Report Type: Report from Study
  Country: US (occurrence: US)
  Receive Date: 20150701
  Receipt Date: 20150701
  Transmission Date: 20151125
  Serious: Yes (Other)
  Sender: FDA-Public Use
  Company Number: US-BIOGENIDEC-2015BI088601

PATIENT
  Age: 32 Year
  Sex: Female
  Weight: 80 kg

DRUGS (1)
  1. TECFIDERA [Suspect]
     Active Substance: DIMETHYL FUMARATE
     Indication: MULTIPLE SCLEROSIS
     Route: 048
     Dates: start: 20150601

REACTIONS (4)
  - Deep vein thrombosis [Unknown]
  - Flushing [Unknown]
  - Pruritus [Unknown]
  - Feeling hot [Unknown]

NARRATIVE: CASE EVENT DATE: 20150618
